FAERS Safety Report 4429321-3 (Version None)
Quarter: 2004Q3

REPORT INFORMATION
  Report Type: 
  Country: None (occurrence: None)
  Receive Date: 20040818
  Receipt Date: 20040818
  Transmission Date: 20050211
  Serious: No
  Sender: FDA-Public Use
  Company Number: None

PATIENT
  Age: 40 Year
  Sex: Male
  Weight: 82 kg

DRUGS (3)
  1. SPIRONOLACTONE [Suspect]
     Indication: ASCITES
     Dosage: 100 MG QD ORAL
     Route: 048
     Dates: start: 20040127, end: 20040205
  2. TRIMETHOPRIM + SULFAMETHOXAZOLE [Suspect]
     Indication: PNEUMOCYSTIS CARINII PNEUMONIA
     Dosage: 1 DS TABLET QD ORAL
     Route: 048
     Dates: start: 20040202, end: 20040205
  3. TRIMETHOPRIM + SULFAMETHOXAZOLE [Suspect]
     Indication: PROPHYLAXIS
     Dosage: 1 DS TABLET QD ORAL
     Route: 048
     Dates: start: 20040202, end: 20040205

REACTIONS (2)
  - ELECTROCARDIOGRAM T WAVE PEAKED [None]
  - HYPERKALAEMIA [None]
